FAERS Safety Report 8792651 (Version 2)
Quarter: 2015Q3

REPORT INFORMATION
  Report Type: Report from Study
  Country: US (occurrence: US)
  Receive Date: 20120918
  Receipt Date: 20150817
  Transmission Date: 20151125
  Serious: Yes (Death)
  Sender: FDA-Public Use
  Company Number: US-ROCHE-1129466

PATIENT
  Sex: Male
  Weight: 86 kg

DRUGS (13)
  1. AVASTIN [Suspect]
     Active Substance: BEVACIZUMAB
     Indication: MALIGNANT MELANOMA
     Dosage: INFUSION DATES: 02/JUN/2009, 18/JUN/2009 AND 30/JUN/2009
     Route: 042
     Dates: start: 20090519
  2. BENADRYL [Concomitant]
     Active Substance: DIPHENHYDRAMINE HYDROCHLORIDE
     Route: 042
  3. FAMOTIDINE. [Concomitant]
     Active Substance: FAMOTIDINE
     Route: 042
  4. GRANISETRON [Concomitant]
     Active Substance: GRANISETRON
     Route: 048
  5. AVASTIN [Suspect]
     Active Substance: BEVACIZUMAB
     Dosage: INFUSION DATES: 17/JUL/2009 AND 31/JUL/2009
     Route: 042
  6. DEXAMETHASONE. [Concomitant]
     Active Substance: DEXAMETHASONE
     Route: 048
  7. PACLITAXEL. [Concomitant]
     Active Substance: PACLITAXEL
     Route: 042
  8. DEXAMETHASONE. [Concomitant]
     Active Substance: DEXAMETHASONE
     Route: 042
  9. CARBOPLATIN. [Concomitant]
     Active Substance: CARBOPLATIN
     Route: 042
  10. PROCHLORPERAZINE. [Concomitant]
     Active Substance: PROCHLORPERAZINE
     Route: 048
  11. LORAZEPAM. [Concomitant]
     Active Substance: LORAZEPAM
     Route: 048
  12. DEXAMETHASONE. [Concomitant]
     Active Substance: DEXAMETHASONE
     Route: 065
  13. BENADRYL [Concomitant]
     Active Substance: DIPHENHYDRAMINE HYDROCHLORIDE
     Route: 065

REACTIONS (4)
  - Death [Fatal]
  - Nausea [Unknown]
  - Headache [Unknown]
  - Fatigue [Unknown]
